FAERS Safety Report 22105183 (Version 1)
Quarter: 2023Q1

REPORT INFORMATION
  Report Type: Spontaneous
  Country: CN (occurrence: CN)
  Receive Date: 20230316
  Receipt Date: 20230316
  Transmission Date: 20230418
  Serious: Yes (Life-Threatening, Other)
  Sender: FDA-Public Use
  Company Number: CN-QILU TIANHE PHARMACEUTICAL CO. LTD-QLT-000002-2023

PATIENT
  Age: 73 Year
  Sex: Male

DRUGS (1)
  1. PIPERACILLIN AND TAZOBACTAM [Suspect]
     Active Substance: PIPERACILLIN SODIUM\TAZOBACTAM SODIUM
     Indication: Pneumonia
     Dosage: STARTED AT 13:55
     Route: 042

REACTIONS (4)
  - Jarisch-Herxheimer reaction [Recovered/Resolved]
  - Pulmonary alveolar haemorrhage [Recovered/Resolved]
  - Respiratory failure [Recovered/Resolved]
  - Septic shock [Recovered/Resolved]
